FAERS Safety Report 5740210-4 (Version None)
Quarter: 2008Q2

REPORT INFORMATION
  Report Type: 
  Country: None (occurrence: None)
  Receive Date: 20080516
  Receipt Date: 20080507
  Transmission Date: 20081010
  Serious: Yes (Other)
  Sender: FDA-Public Use
  Company Number: US-JNJFOC-20080501576

PATIENT
  Sex: Female
  Weight: 57.15 kg

DRUGS (1)
  1. REMICADE [Suspect]
     Indication: DRUG USE FOR UNKNOWN INDICATION
     Route: 042

REACTIONS (4)
  - ARTHROPATHY [None]
  - DRUG INEFFECTIVE [None]
  - HYPOTENSION [None]
  - LOSS OF CONSCIOUSNESS [None]
